FAERS Safety Report 16842982 (Version 2)
Quarter: 2019Q3

REPORT INFORMATION
  Report Type: Report from Study
  Country: None (occurrence: LB)
  Receive Date: 20190924
  Receipt Date: 20190927
  Transmission Date: 20191005
  Serious: Yes (Hospitalization)
  Sender: FDA-Public Use
  Company Number: LB-ABBVIE-19K-093-2933742-00

PATIENT
  Age: 48 Year
  Sex: Female
  Weight: 55 kg

DRUGS (2)
  1. HUMIRA [Suspect]
     Active Substance: ADALIMUMAB
     Indication: COLITIS ULCERATIVE
     Dosage: PATIENT CAN^T RECALL THE LOADING DOSE
     Route: 058
     Dates: start: 201310, end: 201310
  2. HUMIRA [Suspect]
     Active Substance: ADALIMUMAB
     Route: 058
     Dates: start: 201311, end: 201905

REACTIONS (4)
  - Colitis ulcerative [Recovering/Resolving]
  - Blood sodium decreased [Recovering/Resolving]
  - Blood iron decreased [Recovering/Resolving]
  - Electrolyte depletion [Recovering/Resolving]

NARRATIVE: CASE EVENT DATE: 201909
